FAERS Safety Report 25169005 (Version 1)
Quarter: 2025Q2

REPORT INFORMATION
  Report Type: Spontaneous
  Country: US (occurrence: US)
  Receive Date: 20250407
  Receipt Date: 20250407
  Transmission Date: 20250716
  Serious: Yes (Other)
  Sender: COLGATE
  Company Number: US-COLGATE PALMOLIVE COMPANY-20250400399

PATIENT

DRUGS (1)
  1. HYDROGEN PEROXIDE [Suspect]
     Active Substance: HYDROGEN PEROXIDE

REACTIONS (6)
  - Muscle spasms [Unknown]
  - Abdominal discomfort [Unknown]
  - Syncope [Unknown]
  - Hypotension [Unknown]
  - Tooth disorder [Unknown]
  - Product use complaint [Unknown]

NARRATIVE: CASE EVENT DATE: 20250330
